FAERS Safety Report 9519435 (Version 1)
Quarter: 2013Q3

REPORT INFORMATION
  Report Type: Spontaneous
  Country: US (occurrence: US)
  Receive Date: 20130912
  Receipt Date: 20130912
  Transmission Date: 20140515
  Serious: Yes (Death)
  Sender: FDA-Public Use
  Company Number: US-GLAXOSMITHKLINE-A1041209A

PATIENT
  Age: 76 Year
  Sex: Male

DRUGS (1)
  1. SORIATANE [Suspect]
     Indication: PRODUCT USED FOR UNKNOWN INDICATION
     Dosage: 25MG UNKNOWN
     Route: 048
     Dates: start: 20100622

REACTIONS (2)
  - Neoplasm malignant [Fatal]
  - Neoplasm malignant [Fatal]
